FAERS Safety Report 5930278-4 (Version None)
Quarter: 2008Q4

REPORT INFORMATION
  Report Type: 
  Country: None (occurrence: None)
  Receive Date: 20081024
  Receipt Date: 20081014
  Transmission Date: 20090506
  Serious: Yes (Other)
  Sender: FDA-Public Use
  Company Number: AT-PFIZER INC-2008088497

PATIENT

DRUGS (1)
  1. SUTENT [Suspect]
     Indication: METASTATIC RENAL CELL CARCINOMA
     Dosage: DAILY DOSE:50MG

REACTIONS (4)
  - CARDIAC DISORDER [None]
  - CARDIAC ENZYMES INCREASED [None]
  - EJECTION FRACTION ABNORMAL [None]
  - ELECTROCARDIOGRAM CHANGE [None]
